FAERS Safety Report 19386535 (Version 1)
Quarter: 2021Q2

REPORT INFORMATION
  Report Type: Report from Study
  Country: US (occurrence: US)
  Receive Date: 20210608
  Receipt Date: 20210608
  Transmission Date: 20210717
  Serious: Yes (Life-Threatening, Hospitalization, Other)
  Sender: FDA-Public Use
  Company Number: NVSC2021US126889

PATIENT
  Age: 17 Year
  Sex: Female
  Weight: 84.3 kg

DRUGS (12)
  1. ILARIS [Suspect]
     Active Substance: CANAKINUMAB
     Indication: JUVENILE IDIOPATHIC ARTHRITIS
     Dosage: 250 MG, QD
     Route: 065
     Dates: start: 20160606, end: 20170330
  2. IBUPROFEN. [Suspect]
     Active Substance: IBUPROFEN
     Indication: JUVENILE IDIOPATHIC ARTHRITIS
     Dosage: 600 MG, QD
     Route: 065
     Dates: start: 20160417, end: 20160801
  3. HYDROXYZINE PAMOATE. [Suspect]
     Active Substance: HYDROXYZINE PAMOATE
     Indication: JUVENILE IDIOPATHIC ARTHRITIS
     Dosage: 25 MG, QD
     Route: 065
     Dates: start: 20160502, end: 20160801
  4. HYOSCYAMINE. [Suspect]
     Active Substance: HYOSCYAMINE
     Indication: JUVENILE IDIOPATHIC ARTHRITIS
     Dosage: 0.38 MG, QD
     Route: 065
     Dates: start: 20161107, end: 20170424
  5. PANTOPRAZOLE [Suspect]
     Active Substance: PANTOPRAZOLE
     Indication: JUVENILE IDIOPATHIC ARTHRITIS
     Dosage: 40 MG, QD
     Route: 065
     Dates: start: 20160421
  6. METHOTREXATE. [Suspect]
     Active Substance: METHOTREXATE
     Indication: JUVENILE IDIOPATHIC ARTHRITIS
     Dosage: 25 MG, QD
     Route: 065
     Dates: start: 20160422, end: 20160901
  7. FOLIC ACID. [Suspect]
     Active Substance: FOLIC ACID
     Indication: JUVENILE IDIOPATHIC ARTHRITIS
     Dosage: 1 MG, QD
     Route: 065
     Dates: start: 20160421, end: 20170206
  8. IBUPROFEN. [Suspect]
     Active Substance: IBUPROFEN
     Dosage: 600 MG, QD
     Route: 065
     Dates: start: 20160801, end: 20161107
  9. OMEPRAZOLE. [Suspect]
     Active Substance: OMEPRAZOLE
     Indication: JUVENILE IDIOPATHIC ARTHRITIS
     Dosage: 40 MG, QD
     Route: 065
     Dates: start: 20161107
  10. ILARIS [Suspect]
     Active Substance: CANAKINUMAB
     Dosage: 250 MG, QD
     Route: 065
     Dates: start: 20170424, end: 20170526
  11. IBUPROFEN. [Suspect]
     Active Substance: IBUPROFEN
     Dosage: 200 UNK
     Route: 065
     Dates: start: 20161107, end: 20170206
  12. CEFTIN [Suspect]
     Active Substance: CEFUROXIME AXETIL
     Indication: JUVENILE IDIOPATHIC ARTHRITIS
     Dosage: 500 MG, QD
     Route: 065
     Dates: start: 20160502, end: 20160606

REACTIONS (5)
  - Septic shock [Recovering/Resolving]
  - Pyrexia [Unknown]
  - Urinary tract infection [Recovered/Resolved]
  - Urosepsis [Recovered/Resolved]
  - Dysuria [Unknown]

NARRATIVE: CASE EVENT DATE: 20180623
